FAERS Safety Report 4412909-3 (Version None)
Quarter: 2004Q3

REPORT INFORMATION
  Report Type: 
  Country: None (occurrence: None)
  Receive Date: 20040730
  Receipt Date: 20040720
  Transmission Date: 20050211
  Serious: Yes (Hospitalization)
  Sender: FDA-Public Use
  Company Number: 2004UW15195

PATIENT
  Age: 74 Year
  Sex: Female
  Weight: 68.0396 kg

DRUGS (11)
  1. CRESTOR [Suspect]
     Indication: HYPERCHOLESTEROLAEMIA
     Dosage: 10 MG PO
     Route: 048
     Dates: start: 20040501
  2. STEROID [Suspect]
     Indication: POLYMYALGIA RHEUMATICA
  3. TOPROL-XL [Concomitant]
  4. HYDROCHLOROTHIAZIDE [Concomitant]
  5. GLUCOPHAGE [Concomitant]
  6. NORVASC [Concomitant]
  7. PLAVIX [Concomitant]
  8. PROTONIX [Concomitant]
  9. CLONIDINE HCL [Concomitant]
  10. PREDNISONE [Concomitant]
  11. ASPIRIN [Concomitant]

REACTIONS (6)
  - MUSCULAR WEAKNESS [None]
  - MYALGIA [None]
  - MYOCARDIAL ISCHAEMIA [None]
  - MYOPATHY STEROID [None]
  - POST PROCEDURAL COMPLICATION [None]
  - URINARY RETENTION [None]
